FAERS Safety Report 8521258-3 (Version None)
Quarter: 2012Q3

REPORT INFORMATION
  Report Type: 
  Country: None (occurrence: None)
  Receive Date: 20120719
  Receipt Date: 20080128
  Transmission Date: 20120928
  Serious: Yes (Death)
  Sender: FDA-Public Use
  Company Number: JP-ROCHE-1088971

PATIENT
  Age: 66 Year
  Sex: Female

DRUGS (11)
  1. NORVASC [Concomitant]
     Route: 065
     Dates: start: 20060401, end: 20080110
  2. ACTIVASE [Suspect]
     Indication: CEREBRAL ARTERY EMBOLISM
     Dates: start: 20080111, end: 20080111
  3. ASPIRIN [Concomitant]
     Indication: ACUTE MYOCARDIAL INFARCTION
     Route: 065
     Dates: start: 20060401, end: 20080110
  4. WARFARIN SODIUM [Concomitant]
     Indication: ACUTE MYOCARDIAL INFARCTION
     Route: 065
     Dates: start: 20060401, end: 20080110
  5. ENALAPRIL MALEATE [Concomitant]
     Route: 065
     Dates: start: 20060401, end: 20080110
  6. RADICUT [Concomitant]
     Route: 065
     Dates: start: 20080111, end: 20080111
  7. LASIX [Concomitant]
     Route: 065
     Dates: start: 20060401, end: 20080110
  8. LANSOPRAZOLE [Concomitant]
     Route: 065
     Dates: start: 20060401, end: 20080110
  9. SUNRYTHM [Concomitant]
     Route: 065
     Dates: start: 20060401, end: 20080110
  10. SIGMART [Concomitant]
     Route: 065
     Dates: start: 20060401, end: 20080110
  11. CARVEDILOL [Concomitant]
     Route: 065
     Dates: start: 20060401, end: 20080110

REACTIONS (1)
  - HAEMORRHAGIC CEREBRAL INFARCTION [None]
